FAERS Safety Report 16370003 (Version 1)
Quarter: 2019Q2

REPORT INFORMATION
  Report Type: Spontaneous
  Country: US (occurrence: US)
  Receive Date: 20190530
  Receipt Date: 20190530
  Transmission Date: 20190711
  Serious: No
  Sender: FDA-Public Use
  Company Number: US-VIVIMED-2018SP005410

PATIENT

DRUGS (2)
  1. ZOLPIDEM [Suspect]
     Active Substance: ZOLPIDEM\ZOLPIDEM TARTRATE
     Indication: INSOMNIA
     Dosage: 10 MG, UNK
     Route: 065
  2. ZOLPIDEM [Suspect]
     Active Substance: ZOLPIDEM\ZOLPIDEM TARTRATE
     Dosage: 15 MG EVERY NIGHT (10 MG TABLET AROUND 10 P.M. AND 5 MG AROUND 3 A.M)
     Route: 065

REACTIONS (3)
  - Abnormal behaviour [Recovered/Resolved]
  - Somnambulism [Recovered/Resolved]
  - Amnesia [Recovered/Resolved]
